FAERS Safety Report 9102401 (Version 2)
Quarter: 2013Q1

REPORT INFORMATION
  Report Type: Spontaneous
  Country: US (occurrence: US)
  Receive Date: 20130219
  Receipt Date: 20130305
  Transmission Date: 20140127
  Serious: Yes (Disabling)
  Sender: FDA-Public Use
  Company Number: US-PFIZER INC-2013060037

PATIENT
  Age: 55 Year
  Sex: Male

DRUGS (2)
  1. LIPITOR [Suspect]
     Dosage: 40 MG (1 TABLET), DAILY
  2. ZOLOFT [Suspect]
     Dosage: 150 MG (1.5 TABLET), DAILY

REACTIONS (1)
  - Renal failure [Unknown]
